FAERS Safety Report 6655642-X (Version None)
Quarter: 2010Q1

REPORT INFORMATION
  Report Type: 
  Country: None (occurrence: None)
  Receive Date: 20100326
  Receipt Date: 20100326
  Transmission Date: 20100710
  Serious: Yes (Hospitalization)
  Sender: FDA-Public Use
  Company Number: None

PATIENT
  Age: 76 Year
  Sex: Male
  Weight: 87 kg

DRUGS (1)
  1. FONDAPARINUX SODIUM [Suspect]
     Indication: KNEE ARTHROPLASTY
     Dosage: 2.5 MG EVERY DAY SQ
     Route: 058
     Dates: start: 20090728, end: 20090801

REACTIONS (3)
  - BLOOD ALKALINE PHOSPHATASE INCREASED [None]
  - HEPATIC ENZYME INCREASED [None]
  - TRANSAMINASES INCREASED [None]
